FAERS Safety Report 8618129-0 (Version None)
Quarter: 2012Q3

REPORT INFORMATION
  Report Type: 
  Country: None (occurrence: None)
  Receive Date: 20120824
  Receipt Date: 20111230
  Transmission Date: 20120928
  Serious: No
  Sender: FDA-Public Use
  Company Number: US-ASTRAZENECA-2012SE00366

PATIENT
  Age: 60 Year
  Sex: Female

DRUGS (5)
  1. SYMBICORT [Suspect]
     Route: 055
  2. NEXIUM [Suspect]
     Route: 048
  3. BACTRIM [Concomitant]
  4. PERCOCET [Concomitant]
  5. ZANTAC [Concomitant]

REACTIONS (3)
  - DRUG DOSE OMISSION [None]
  - APHAGIA [None]
  - DYSPNOEA [None]
